FAERS Safety Report 8403666 (Version 2)
Quarter: 2012Q4

REPORT INFORMATION
  Report Type: 
  Country: DE (occurrence: DE)
  Receive Date: 20120213
  Receipt Date: 20120829
  Transmission Date: 20130627
  Serious: Yes (Hospitalization)
  Sender: FDA-Public Use
  Company Number: DE-ELI_LILLY_AND_COMPANY-DE201202000490

PATIENT
  Sex: Female

DRUGS (7)
  1. BYDUREON [Suspect]
     Indication: TYPE 2 DIABETES MELLITUS
     Dosage: 2 mg, weekly (1/W)
     Route: 058
     Dates: start: 201109, end: 20120117
  2. BYDUREON [Suspect]
     Dosage: 2 mg, weekly (1/W)
     Route: 058
     Dates: start: 20120122, end: 20120810
  3. BISOPROLOL [Concomitant]
  4. RAMIPRIL [Concomitant]
  5. L-THYROXIN [Concomitant]
     Dosage: 75 ug, unknown
  6. GLIMEPIRID [Concomitant]
     Dosage: 2 mg, unknown
  7. VICTOZA [Concomitant]
     Dosage: UNK
     Dates: start: 20120122

REACTIONS (2)
  - Blood glucose increased [Recovered/Resolved]
  - Drug dose omission [Recovered/Resolved]
